FAERS Safety Report 5443799-8 (Version None)
Quarter: 2007Q3

REPORT INFORMATION
  Report Type: 
  Country: None (occurrence: None)
  Receive Date: 20070905
  Receipt Date: 20070824
  Transmission Date: 20080115
  Serious: Yes (Other)
  Sender: FDA-Public Use
  Company Number: AR-PFIZER INC-2007061408

PATIENT
  Sex: Female
  Weight: 64 kg

DRUGS (1)
  1. XALATAN [Suspect]
     Indication: GLAUCOMA
     Route: 031

REACTIONS (7)
  - DRUG INEFFECTIVE [None]
  - EYE PAIN [None]
  - EYELID BLEEDING [None]
  - INTRAOCULAR PRESSURE TEST ABNORMAL [None]
  - NASOPHARYNGITIS [None]
  - PHARYNGOLARYNGEAL PAIN [None]
  - RHINITIS [None]
